FAERS Safety Report 6067309-X (Version None)
Quarter: 2009Q1

REPORT INFORMATION
  Report Type: 
  Country: None (occurrence: None)
  Receive Date: 20090203
  Receipt Date: 20090106
  Transmission Date: 20090719
  Serious: Yes (Other)
  Sender: FDA-Public Use
  Company Number: 09-001

PATIENT
  Age: 70 Year
  Sex: Male

DRUGS (1)
  1. DORZOLAMIDE HYDROCHLORIDE AND TIMOLOL MALEATE [Suspect]
     Dates: start: 20081229, end: 20081231

REACTIONS (2)
  - EYE IRRITATION [None]
  - FOREIGN BODY SENSATION IN EYES [None]
